FAERS Safety Report 8905251 (Version 1)
Quarter: 2012Q4

REPORT INFORMATION
  Report Type: 
  Country: US (occurrence: US)
  Receive Date: 20121113
  Receipt Date: 20121113
  Transmission Date: 20130627
  Serious: No
  Sender: FDA-Public Use
  Company Number: US-009507513-1211USA004783

PATIENT
  Sex: Male

DRUGS (3)
  1. VICTRELIS [Suspect]
     Dosage: 800 mg, tid
     Route: 048
     Dates: start: 20121102
  2. PEG-INTRON [Suspect]
     Dosage: UNK
     Dates: start: 20121102
  3. REBETOL [Suspect]
     Dosage: UNK
     Dates: start: 20121102

REACTIONS (1)
  - Haematocrit decreased [Unknown]
